FAERS Safety Report 17027350 (Version 3)
Quarter: 2021Q1

REPORT INFORMATION
  Report Type: Report from Study
  Country: US (occurrence: US)
  Receive Date: 20191113
  Receipt Date: 20210203
  Transmission Date: 20210419
  Serious: Yes (Hospitalization)
  Sender: FDA-Public Use
  Company Number: NVSC2019US034613

PATIENT
  Age: 58 Year
  Sex: Female

DRUGS (2)
  1. ENTRESTO [Suspect]
     Active Substance: SACUBITRIL\VALSARTAN
     Dosage: 1 DF, BID, 100 MG (49 MG OF SACUBITRIL, 51 MG OF VALSARTAN)
     Route: 048
     Dates: start: 201907
  2. ENTRESTO [Suspect]
     Active Substance: SACUBITRIL\VALSARTAN
     Indication: EJECTION FRACTION DECREASED
     Dosage: UNK UNK, BID
     Route: 048

REACTIONS (5)
  - Cardiac dysfunction [Not Recovered/Not Resolved]
  - Weight decreased [Unknown]
  - Cardiac failure [Not Recovered/Not Resolved]
  - Fatigue [Unknown]
  - Product use in unapproved indication [Unknown]

NARRATIVE: CASE EVENT DATE: 201602
